FAERS Safety Report 9406944 (Version 1)
Quarter: 2013Q3

REPORT INFORMATION
  Report Type: Spontaneous
  Country: US (occurrence: US)
  Receive Date: 20130718
  Receipt Date: 20130718
  Transmission Date: 20140515
  Serious: No
  Sender: FDA-Public Use
  Company Number: US-PFIZER INC-2013207206

PATIENT
  Sex: 0

DRUGS (1)
  1. BOSULIF [Suspect]
     Dosage: 100 MG, UNK

REACTIONS (2)
  - Diarrhoea [Unknown]
  - Vomiting [Unknown]
